FAERS Safety Report 9720585 (Version 1)
Quarter: 2013Q4

REPORT INFORMATION
  Report Type: Spontaneous
  Country: US (occurrence: US)
  Receive Date: 20131129
  Receipt Date: 20131129
  Transmission Date: 20140711
  Serious: No
  Sender: FDA-Public Use
  Company Number: US-009507513-1311USA008305

PATIENT
  Sex: Female
  Weight: 30.39 kg

DRUGS (1)
  1. PROVENTIL [Suspect]
     Dosage: UNK
     Dates: start: 2012

REACTIONS (2)
  - Hand-arm vibration syndrome [Unknown]
  - Insomnia [Unknown]
